FAERS Safety Report 9234607 (Version 2)
Quarter: 2013Q3

REPORT INFORMATION
  Report Type: Spontaneous
  Country: US (occurrence: US)
  Receive Date: 20130416
  Receipt Date: 20130719
  Transmission Date: 20140515
  Serious: No
  Sender: FDA-Public Use
  Company Number: US-MYLANLABS-2013S1004018

PATIENT
  Age: 69 Year
  Sex: Female

DRUGS (3)
  1. VALSARTAN AND HYDROCHLOROTHIAZIDE TABLETS [Suspect]
     Indication: BLOOD PRESSURE INCREASED
     Route: 048
     Dates: start: 201211
  2. PREVACID [Concomitant]
  3. SYNTHROID [Concomitant]

REACTIONS (2)
  - Urinary tract infection [Not Recovered/Not Resolved]
  - Palpitations [Not Recovered/Not Resolved]
